FAERS Safety Report 4618123-0 (Version None)
Quarter: 2005Q1

REPORT INFORMATION
  Report Type: 
  Country: None (occurrence: None)
  Receive Date: 20050323
  Receipt Date: 20050318
  Transmission Date: 20050727
  Serious: Yes (Other)
  Sender: FDA-Public Use
  Company Number: THQ2005A00284

PATIENT
  Age: 57 Year
  Sex: Female

DRUGS (5)
  1. ZOTON CAPSULES (LANSOPRAZOLE) (30 MICROGRAM, CAPSULES) [Suspect]
     Indication: ANAEMIA
     Dosage: (30 MG) PER ORAL
     Route: 048
     Dates: start: 20041222
  2. ZOTON CAPSULES (LANSOPRAZOLE) (30 MICROGRAM, CAPSULES) [Suspect]
     Indication: HIATUS HERNIA
     Dosage: (30 MG) PER ORAL
     Route: 048
     Dates: start: 20041222
  3. RAMIPRIL [Concomitant]
  4. BENDROFLUAZIDE (BENDROFLUMETHIAZIDE) [Concomitant]
  5. ASPIRIN [Concomitant]

REACTIONS (5)
  - ABDOMINAL PAIN UPPER [None]
  - DEFAECATION URGENCY [None]
  - FAECAL OCCULT BLOOD POSITIVE [None]
  - FREQUENT BOWEL MOVEMENTS [None]
  - HAEMOGLOBIN DECREASED [None]
